FAERS Safety Report 19815642 (Version 1)
Quarter: 2021Q3

REPORT INFORMATION
  Report Type: Report from Study
  Country: CA (occurrence: CA)
  Receive Date: 20210909
  Receipt Date: 20210909
  Transmission Date: 20211014
  Serious: Yes (Other)
  Sender: FDA-Public Use
  Company Number: CA-PFIZER INC-202101137917

PATIENT
  Age: 63 Year
  Sex: Male

DRUGS (18)
  1. AMLODIPINE BESILATE [Suspect]
     Active Substance: AMLODIPINE BESYLATE
     Indication: BLOOD PRESSURE INCREASED
     Dosage: 2.5 MG, 1 EVERY 1 DAYS
     Route: 065
  2. ACETYLSALICYLIC ACID [Concomitant]
     Active Substance: ASPIRIN
     Dosage: UNK (1 EVERY 1 DAYS )
     Route: 048
  3. PANTOPRAZOLE [Concomitant]
     Active Substance: PANTOPRAZOLE
     Dosage: 40 MG, 1 EVERY 1 DAYS
     Route: 048
  4. PNEUMOCOCCAL VACCINE POLYVALENT NOS [Concomitant]
     Active Substance: PNEUMOCOCCAL VACCINE POLYVALENT
     Dosage: 0.5 ML, AS REQUIRED
     Route: 030
  5. DARBEPOETIN ALFA [Concomitant]
     Active Substance: DARBEPOETIN ALFA
     Dosage: 40 UG, 1 EVERY 4 HOURS
     Route: 042
  6. VITAMIN B COMPLEX [Concomitant]
     Active Substance: CYANOCOBALAMIN\DEXPANTHENOL\NIACINAMIDE\PYRIDOXINE HYDROCHLORIDE\RIBOFLAVIN 5^-PHOSPHATE SODIUM\THIAMINE HYDROCHLORIDE\VITAMIN B COMPLEX
     Dosage: UNK (1 EVERY 1 DAYS)
     Route: 048
  7. PERINDOPRIL [Concomitant]
     Active Substance: PERINDOPRIL
     Dosage: 8 MG, 1 EVERY 1 DAYS
     Route: 048
  8. VITAMIN C [Concomitant]
     Active Substance: ASCORBIC ACID
     Dosage: UNK (1 EVERY 1 DAYS)
     Route: 048
  9. ATORVASTATIN CALCIUM. [Concomitant]
     Active Substance: ATORVASTATIN CALCIUM
     Dosage: 10 MG, 1 EVERY 1 DAYS
     Route: 048
  10. ALTEPLASE. [Concomitant]
     Active Substance: ALTEPLASE
     Dosage: 10 MG
  11. INFLUENZA VACCINE INACT SPLIT 4V [Concomitant]
     Dosage: 0.5 ML
     Route: 030
  12. ERLEADA [Interacting]
     Active Substance: APALUTAMIDE
     Indication: PROSTATE CANCER
     Dosage: 240 MG, 1 EVERY 1 DAYS
     Route: 048
  13. DICLOFENAC [Concomitant]
     Active Substance: DICLOFENAC
     Dosage: UNK (2 EVERY 1 DAYS)
     Route: 061
  14. EPINEPHRINE. [Concomitant]
     Active Substance: EPINEPHRINE
     Dosage: UNK (AS REQUIRED)
     Route: 030
  15. ACETAMINOPHEN. [Concomitant]
     Active Substance: ACETAMINOPHEN
     Dosage: UNK (1 EVERY 4 HOURS)
     Route: 048
  16. METOPROLOL. [Concomitant]
     Active Substance: METOPROLOL
     Dosage: 25 MG, 2 EVERY 1 DAYS
     Route: 048
  17. ALFACALCIDOL [Concomitant]
     Active Substance: ALFACALCIDOL
     Dosage: 0.25 UG, 3 EVERY 1 WEEKS
     Route: 048
  18. AMOXICILLIN/CLAVULANIC ACID [Concomitant]
     Active Substance: AMOXICILLIN\CLAVULANIC ACID
     Dosage: UNK (2 EVERY 1 DAYS )
     Route: 048

REACTIONS (2)
  - Drug ineffective [Unknown]
  - Drug interaction [Unknown]
